FAERS Safety Report 7946006-7 (Version None)
Quarter: 2011Q4

REPORT INFORMATION
  Report Type: 
  Country: None (occurrence: None)
  Receive Date: 20111122
  Receipt Date: 20111116
  Transmission Date: 20120403
  Serious: Yes (Hospitalization, Other)
  Sender: FDA-Public Use
  Company Number: 2009-201106-NL

PATIENT
  Age: 25 Year
  Sex: Female
  Weight: 129.7287 kg

DRUGS (1)
  1. NUVARING [Suspect]
     Indication: CONTRACEPTION
     Dates: end: 20070716

REACTIONS (20)
  - THROMBOPHLEBITIS [None]
  - VULVOVAGINAL MYCOTIC INFECTION [None]
  - DEEP VEIN THROMBOSIS [None]
  - CARDIOMEGALY [None]
  - MENSTRUATION IRREGULAR [None]
  - LIGAMENT SPRAIN [None]
  - PULMONARY EMBOLISM [None]
  - VAGINAL DISCHARGE [None]
  - DRUG DOSE OMISSION [None]
  - INTERNATIONAL NORMALISED RATIO INCREASED [None]
  - BACK PAIN [None]
  - COAGULOPATHY [None]
  - MENORRHAGIA [None]
  - HIATUS HERNIA [None]
  - FIBRIN D DIMER INCREASED [None]
  - BLOOD HOMOCYSTEINE INCREASED [None]
  - AMENORRHOEA [None]
  - ARTHRALGIA [None]
  - OEDEMA PERIPHERAL [None]
  - CELLULITIS [None]
